FAERS Safety Report 24939354 (Version 4)
Quarter: 2025Q1

REPORT INFORMATION
  Report Type: Spontaneous
  Country: FR (occurrence: FR)
  Receive Date: 20250206
  Receipt Date: 20250228
  Transmission Date: 20250409
  Serious: Yes (Death, Other)
  Sender: JOHNSON AND JOHNSON
  Company Number: None

PATIENT
  Age: 44 Year
  Sex: Male
  Weight: 75 kg

DRUGS (11)
  1. STELARA [Suspect]
     Active Substance: USTEKINUMAB
     Indication: Crohn^s disease
     Route: 041
     Dates: start: 20240618
  2. STELARA [Suspect]
     Active Substance: USTEKINUMAB
     Dosage: IV FOLLOWED BY 90MG SC EVERY 8 WEEKS
  3. OXAZEPAM [Suspect]
     Active Substance: OXAZEPAM
     Indication: Anxiety
     Dosage: 1 MORNING, NOON AND EVENING
     Dates: start: 20241025
  4. PREDNISOLONE SODIUM METAZOATE [Suspect]
     Active Substance: PREDNISOLONE SODIUM METAZOATE
     Indication: Crohn^s disease
  5. BROMAZEPAM [Concomitant]
     Active Substance: BROMAZEPAM
     Indication: Anxiety
     Dosage: 1/2 AT BEDTIME ON THE 1ST EVENING THEN 1/4 EACH EVENING FOR THE NEXT 5 EVENINGS
     Route: 048
     Dates: start: 20241025
  6. BROMAZEPAM [Concomitant]
     Active Substance: BROMAZEPAM
     Dosage: 1/4 EACH EVENING FOR THE NEXT 5 EVENINGS
  7. OXAZEPAM [Concomitant]
     Active Substance: OXAZEPAM
     Indication: Anxiety
     Dosage: 1 MORNING, NOON AND EVENING
     Route: 048
     Dates: start: 20241025
  8. ENTOCORT [Concomitant]
     Active Substance: BUDESONIDE
     Indication: Crohn^s disease
     Dates: start: 2001
  9. AZATHIOPRINE [Concomitant]
     Active Substance: AZATHIOPRINE
     Indication: Crohn^s disease
     Dates: start: 2002
  10. HUMIRA [Concomitant]
     Active Substance: ADALIMUMAB
     Indication: Product used for unknown indication
     Dates: start: 2020
  11. HUMIRA [Concomitant]
     Active Substance: ADALIMUMAB
     Dates: start: 2014

REACTIONS (2)
  - Anxiety [Fatal]
  - Completed suicide [Fatal]

NARRATIVE: CASE EVENT DATE: 20241025
